FAERS Safety Report 17372909 (Version 5)
Quarter: 2020Q1

REPORT INFORMATION
  Report Type: Report from Study
  Country: CO (occurrence: CO)
  Receive Date: 20200205
  Receipt Date: 20200326
  Transmission Date: 20200409
  Serious: Yes (Other)
  Sender: FDA-Public Use
  Company Number: CO-JNJFOC-20200150256

PATIENT
  Age: 30 Year
  Sex: Female
  Weight: 58 kg

DRUGS (6)
  1. SIMPONI [Suspect]
     Active Substance: GOLIMUMAB
     Indication: COLITIS ULCERATIVE
     Dosage: WEEK 0
     Route: 058
     Dates: start: 20191110, end: 20191110
  2. SIMPONI [Suspect]
     Active Substance: GOLIMUMAB
     Dosage: WEEK 8
     Route: 058
     Dates: start: 20200219
  3. METRONIDAZOLE. [Concomitant]
     Active Substance: METRONIDAZOLE
  4. SIMPONI [Suspect]
     Active Substance: GOLIMUMAB
     Dosage: WEEK 2
     Route: 058
     Dates: start: 20191220, end: 20191220
  5. PREDNISOLONE. [Concomitant]
     Active Substance: PREDNISOLONE
  6. METHOTREXATE. [Concomitant]
     Active Substance: METHOTREXATE

REACTIONS (5)
  - Incorrect dose administered [Unknown]
  - Diarrhoea haemorrhagic [Not Recovered/Not Resolved]
  - Drug ineffective [Unknown]
  - Product dose omission [Unknown]
  - Off label use [Unknown]

NARRATIVE: CASE EVENT DATE: 2019
